FAERS Safety Report 22947649 (Version 4)
Quarter: 2024Q2

REPORT INFORMATION
  Report Type: Spontaneous
  Country: US (occurrence: US)
  Receive Date: 20230915
  Receipt Date: 20240606
  Transmission Date: 20240715
  Serious: No
  Sender: FDA-Public Use
  Company Number: US-BRISTOL-MYERS SQUIBB COMPANY-2023-131269

PATIENT
  Age: 49 Year
  Sex: Female

DRUGS (1)
  1. POMALYST [Suspect]
     Active Substance: POMALIDOMIDE
     Indication: Plasma cell myeloma
     Route: 048
     Dates: start: 202308

REACTIONS (7)
  - Paraesthesia [Unknown]
  - Dizziness [Unknown]
  - Illness [Unknown]
  - Amnesia [Unknown]
  - Pain in extremity [Unknown]
  - Joint swelling [Unknown]
  - Tinnitus [Unknown]
